FAERS Safety Report 8520318-0 (Version None)
Quarter: 2012Q3

REPORT INFORMATION
  Report Type: 
  Country: None (occurrence: None)
  Receive Date: 20120719
  Receipt Date: 20120705
  Transmission Date: 20120928
  Serious: Yes (Death, Hospitalization, Disabling)
  Sender: FDA-Public Use
  Company Number: US-RANBAXY-2012US-57806

PATIENT
  Age: 57 Year
  Sex: Male

DRUGS (5)
  1. SIMVASTATIN [Suspect]
     Dosage: 80MG, DAILY
     Route: 065
     Dates: end: 20100701
  2. CYCLOSPORINE [Interacting]
     Indication: PROPHYLAXIS AGAINST TRANSPLANT REJECTION
     Dosage: UNKLNWON
     Route: 065
  3. ZOCOR [Interacting]
     Indication: BLOOD CHOLESTEROL
     Dosage: 40MG PER DAY
     Route: 065
     Dates: start: 20100101
  4. SIMVASTATIN [Suspect]
     Indication: BLOOD CHOLESTEROL
     Dosage: 40MG, DAILY
     Route: 065
     Dates: start: 20100101
  5. ZOCOR [Interacting]
     Dosage: 80MG PER DAY
     Route: 065
     Dates: end: 20100701

REACTIONS (5)
  - RENAL FAILURE [None]
  - DRUG INTERACTION [None]
  - CORONARY ARTERY OCCLUSION [None]
  - BLOOD PRESSURE FLUCTUATION [None]
  - RHABDOMYOLYSIS [None]
